FAERS Safety Report 6189723-4 (Version None)
Quarter: 2009Q2

REPORT INFORMATION
  Report Type: 
  Country: None (occurrence: None)
  Receive Date: 20090512
  Receipt Date: 20090427
  Transmission Date: 20091009
  Serious: Yes (Death)
  Sender: FDA-Public Use
  Company Number: 2009S1007338

PATIENT
  Age: 3 Decade
  Sex: Male

DRUGS (4)
  1. PROPRANOLOL [Suspect]
     Dosage: 1 MG; INTRAVENOUS
  2. PROPRANOLOL HYDROCHLORIDE [Concomitant]
  3. CAREIMAZOLE [Concomitant]
  4. HYDROCORTISONE [Concomitant]

REACTIONS (6)
  - ATRIAL FIBRILLATION [None]
  - BLOOD PRESSURE DECREASED [None]
  - CARDIAC FAILURE CONGESTIVE [None]
  - ELECTROMECHANICAL DISSOCIATION [None]
  - PNEUMONIA [None]
  - TREATMENT NONCOMPLIANCE [None]
